FAERS Safety Report 15701475 (Version 2)
Quarter: 2018Q4

REPORT INFORMATION
  Report Type: Report from Study
  Country: None (occurrence: US)
  Receive Date: 20181207
  Receipt Date: 20181214
  Transmission Date: 20190205
  Serious: Yes (Death, Hospitalization)
  Sender: FDA-Public Use
  Company Number: US-ABBVIE-18K-163-2584011-00

PATIENT
  Age: 66 Year
  Sex: Male
  Weight: 60.84 kg

DRUGS (2)
  1. NORCO [Concomitant]
     Active Substance: ACETAMINOPHEN\HYDROCODONE BITARTRATE
     Indication: PAIN
  2. HUMIRA [Suspect]
     Active Substance: ADALIMUMAB
     Indication: RHEUMATOID ARTHRITIS
     Route: 058
     Dates: start: 2004

REACTIONS (5)
  - Small cell lung cancer [Fatal]
  - White blood cell count increased [Fatal]
  - Hepatocellular carcinoma [Fatal]
  - Oesophageal carcinoma [Fatal]
  - Intestinal ischaemia [Unknown]

NARRATIVE: CASE EVENT DATE: 201805
